FAERS Safety Report 10853781 (Version 2)
Quarter: 2015Q1

REPORT INFORMATION
  Report Type: Spontaneous
  Country: JP (occurrence: None)
  Receive Date: 20150218
  Receipt Date: 20150302
  Transmission Date: 20150721
  Serious: No
  Sender: FDA-Public Use
  Company Number: 2015BCR00034

PATIENT
  Age: 28 Year
  Sex: Female

DRUGS (1)
  1. RAPIACTA [Suspect]
     Active Substance: PERAMIVIR
     Indication: INFLUENZA
     Route: 042
     Dates: start: 20150128, end: 20150128

REACTIONS (3)
  - Eye swelling [None]
  - Eczema eyelids [None]
  - Erythema of eyelid [None]

NARRATIVE: CASE EVENT DATE: 20150130
